FAERS Safety Report 9115610 (Version 1)
Quarter: 2013Q1

REPORT INFORMATION
  Report Type: Spontaneous
  Country: US (occurrence: US)
  Receive Date: 20130225
  Receipt Date: 20130225
  Transmission Date: 20140127
  Serious: Yes (Other)
  Sender: FDA-Public Use
  Company Number: US-PFIZER INC-2013067247

PATIENT
  Age: 36 Year
  Sex: Male
  Weight: 95.24 kg

DRUGS (3)
  1. DILANTIN [Suspect]
     Indication: CONVULSION
     Dosage: 200MG TOT DAILY
     Route: 048
     Dates: end: 201301
  2. DILANTIN [Suspect]
     Dosage: 300MG TOT DAILY
     Route: 048
     Dates: start: 201301, end: 2013
  3. DILANTIN [Suspect]
     Dosage: 500MG TOT DAILY
     Route: 048
     Dates: start: 2013, end: 20130221

REACTIONS (2)
  - Drug ineffective [Unknown]
  - Anticonvulsant drug level below therapeutic [Unknown]
